FAERS Safety Report 17033455 (Version 2)
Quarter: 2020Q1

REPORT INFORMATION
  Report Type: Spontaneous
  Country: US (occurrence: US)
  Receive Date: 20191114
  Receipt Date: 20200320
  Transmission Date: 20200409
  Serious: No
  Sender: FDA-Public Use
  Company Number: US-SA-2019SA313741

PATIENT
  Age: 61 Year
  Sex: Female

DRUGS (2)
  1. DUPIXENT [Suspect]
     Active Substance: DUPILUMAB
     Indication: ASTHMA
     Dosage: 300 MG
     Route: 058
     Dates: start: 20190228, end: 2019
  2. DUPIXENT [Suspect]
     Active Substance: DUPILUMAB
     Dosage: 300 MG/2ML
     Route: 058
     Dates: start: 20190929

REACTIONS (7)
  - Bronchitis [Unknown]
  - Respiratory tract congestion [Unknown]
  - Influenza [Unknown]
  - Product dose omission [Unknown]
  - Respiratory disorder [Unknown]
  - Urticaria [Unknown]
  - Cough [Unknown]

NARRATIVE: CASE EVENT DATE: 202001
